FAERS Safety Report 14285952 (Version 2)
Quarter: 2018Q4

REPORT INFORMATION
  Report Type: Spontaneous
  Country: US (occurrence: US)
  Receive Date: 20171214
  Receipt Date: 20181213
  Transmission Date: 20190204
  Serious: No
  Sender: FDA-Public Use
  Company Number: US-ASTELLAS-2017US028221

PATIENT
  Age: 75 Year
  Sex: Male

DRUGS (3)
  1. TARCEVA [Suspect]
     Active Substance: ERLOTINIB HYDROCHLORIDE
     Indication: PRODUCT USED FOR UNKNOWN INDICATION
     Dosage: 150 MG, ONCE DAILY
     Route: 048
     Dates: start: 20161201
  2. TARCEVA [Interacting]
     Active Substance: ERLOTINIB HYDROCHLORIDE
     Dosage: UNK, UNKNOWN FREQ.
     Route: 065
  3. TARCEVA [Interacting]
     Active Substance: ERLOTINIB HYDROCHLORIDE
     Route: 048
     Dates: start: 20170203

REACTIONS (3)
  - Rash [Unknown]
  - Drug interaction [Unknown]
  - Skin ulcer [Unknown]

NARRATIVE: CASE EVENT DATE: 20161215
